FAERS Safety Report 9383683 (Version 1)
Quarter: 2013Q3

REPORT INFORMATION
  Report Type: Spontaneous
  Country: US (occurrence: US)
  Receive Date: 20130704
  Receipt Date: 20130704
  Transmission Date: 20140515
  Serious: No
  Sender: FDA-Public Use
  Company Number: US-009507513-1307USA000736

PATIENT
  Sex: Female

DRUGS (1)
  1. ELOCON [Suspect]
     Indication: INFLAMMATION
     Dosage: UNK
     Route: 061
     Dates: start: 201303

REACTIONS (1)
  - Drug ineffective [Unknown]
